FAERS Safety Report 8059611-7 (Version None)
Quarter: 2012Q1

REPORT INFORMATION
  Report Type: 
  Country: None (occurrence: None)
  Receive Date: 20120120
  Receipt Date: 20120110
  Transmission Date: 20120608
  Serious: Yes (Other)
  Sender: FDA-Public Use
  Company Number: PHEH2012US001067

PATIENT
  Sex: Female
  Weight: 45.813 kg

DRUGS (10)
  1. ALORA [Suspect]
  2. ESTRADERM [Suspect]
     Route: 062
  3. ESTROGENS CONJUGATED [Suspect]
  4. MIDRIN [Concomitant]
     Indication: HEADACHE
  5. VICODIN [Concomitant]
     Dosage: AS NEEDED
  6. VIVELLE-DOT [Suspect]
     Route: 062
  7. MOTRIN [Concomitant]
     Dosage: 600 MG, PRN
  8. STEROIDS NOS [Suspect]
  9. ESGIC-PLUS [Concomitant]
     Dosage: AS NEEDED
  10. VALIUM [Concomitant]

REACTIONS (8)
  - HYPOPHAGIA [None]
  - ACUTE STRESS DISORDER [None]
  - POOR QUALITY SLEEP [None]
  - PAIN OF SKIN [None]
  - ALOPECIA [None]
  - SKIN BURNING SENSATION [None]
  - BLOOD OESTROGEN DECREASED [None]
  - HYPERSENSITIVITY [None]
